APPROVED DRUG PRODUCT: TOBRAMYCIN SULFATE
Active Ingredient: TOBRAMYCIN SULFATE
Strength: EQ 40MG BASE/ML
Dosage Form/Route: INJECTABLE;INJECTION
Application: A065407 | Product #001 | TE Code: AP
Applicant: MYLAN LABORATORIES LTD
Approved: Mar 11, 2008 | RLD: No | RS: No | Type: RX